FAERS Safety Report 8812150 (Version 2)
Quarter: 2012Q4

REPORT INFORMATION
  Report Type: 
  Country: US (occurrence: US)
  Receive Date: 20120927
  Receipt Date: 20121017
  Transmission Date: 20130627
  Serious: Yes (Death, Other)
  Sender: FDA-Public Use
  Company Number: US-ROCHE-1128749

PATIENT
  Sex: Male

DRUGS (11)
  1. AVASTIN [Suspect]
     Indication: LUNG NEOPLASM MALIGNANT
     Route: 065
     Dates: start: 20050623
  2. AVASTIN [Suspect]
     Indication: METASTASES TO LIVER
     Dosage: 1185 mg/dose
     Route: 065
     Dates: start: 20050714
  3. AVASTIN [Suspect]
     Dosage: 1185 mg/dose
     Route: 065
     Dates: start: 20050915
  4. AVASTIN [Suspect]
     Dosage: 1185 mg/dose
     Route: 065
     Dates: start: 20051013
  5. AVASTIN [Suspect]
     Route: 065
     Dates: start: 20051103
  6. AVASTIN [Suspect]
     Dosage: 1185 mg/dose
     Route: 065
     Dates: start: 20051201
  7. AVASTIN [Suspect]
     Dosage: 1185 mg/dose
     Route: 065
     Dates: start: 20051222
  8. AVASTIN [Suspect]
     Route: 065
     Dates: start: 20051223
  9. CARBOPLATIN [Concomitant]
  10. TAXOL [Concomitant]
  11. ALIMTA [Concomitant]

REACTIONS (4)
  - Disease progression [Fatal]
  - Pericardial effusion [Unknown]
  - Asthenia [Unknown]
  - Fatigue [Unknown]
